FAERS Safety Report 7401090-4 (Version None)
Quarter: 2011Q1

REPORT INFORMATION
  Report Type: 
  Country: None (occurrence: None)
  Receive Date: 20110329
  Receipt Date: 20110315
  Transmission Date: 20110831
  Serious: Yes (Disabling)
  Sender: FDA-Public Use
  Company Number: OSCN-NO-1005S-0132

PATIENT
  Age: 41 Year
  Sex: Female

DRUGS (33)
  1. PARICALCITOL (ZEMPLAR) [Concomitant]
  2. ATORVASTATIN [Concomitant]
  3. CONACALCET (MIMPARA) [Concomitant]
  4. FOLIC ACID [Concomitant]
  5. CODEINE [Concomitant]
  6. METOCLOPRAMIDE HYDROCHLORIDE [Concomitant]
  7. OMNISCAN [Suspect]
     Indication: TRANSPLANT EVALUATION
     Dosage: 20 ML, SINGLE DOSE, I.V.
     Route: 042
     Dates: start: 20060313, end: 20060313
  8. GADOVIST [Suspect]
     Indication: ARTERIOVENOUS FISTULA
     Dosage: NR, SINGLE, DOSE I.V.
     Route: 042
     Dates: start: 20090901, end: 20090901
  9. METOPROLOL (SELO-ZOK) [Concomitant]
  10. WARFARIN (MAREVAN) [Concomitant]
  11. CIPROFLOXACIN [Concomitant]
  12. VANCOMYCIN (VANCOMYCIN ^ALPHARMA^) [Concomitant]
  13. TRANDATE [Concomitant]
  14. PLAVIX [Concomitant]
  15. VITAMIN B COMPLEX, PLAIN B COMBIN STERK) [Concomitant]
  16. SACCHARATED IRON OXIDE (VENOFER) [Concomitant]
  17. KETOBEMIDONE (KETOGAN) [Concomitant]
  18. METOCLOPRAMIDE (EMPERAL) [Concomitant]
  19. MAGNEVIST [Suspect]
     Indication: PRODUCT USED FOR UNKNOWN INDICATION
     Dosage: NR, SINGLE DOSE, I.V.
     Route: 042
     Dates: start: 20071001, end: 20071001
  20. RENAGEL [Concomitant]
  21. ARANESP [Concomitant]
  22. RAMIPRIL [Concomitant]
  23. INNOHEP [Concomitant]
  24. PARACETAMOL (PINEX) [Concomitant]
  25. MELATONIN (CIRCADIN) [Concomitant]
  26. TRAMADOL (TRADOLAN) [Concomitant]
  27. ATORVASTATIN [Concomitant]
  28. GLYCERYL TRINITRATE (NITROLINGUAL) [Concomitant]
  29. LANTHANUM CARBONATE (FOSRENOL) [Concomitant]
  30. STOLPIDEM (STILNOCT) [Concomitant]
  31. VANCOMYCIN (VANCOMYCIN ^HOSPIRA^) [Concomitant]
  32. CODEINE, COMBINATIONS EXCL. PSYCHOLEPTICS (FORTAMOL) [Concomitant]
  33. VITAMIN C (NYCOPLUS C) [Concomitant]

REACTIONS (1)
  - NEPHROGENIC SYSTEMIC FIBROSIS [None]
